FAERS Safety Report 21183829 (Version 1)
Quarter: 2022Q3

REPORT INFORMATION
  Report Type: Spontaneous
  Country: DK (occurrence: DK)
  Receive Date: 20220808
  Receipt Date: 20220808
  Transmission Date: 20221026
  Serious: Yes (Life-Threatening, Hospitalization, Other)
  Sender: FDA-Public Use
  Company Number: None

PATIENT
  Age: 38 Year
  Sex: Female

DRUGS (3)
  1. JARDIANCE [Suspect]
     Active Substance: EMPAGLIFLOZIN
     Indication: Type 2 diabetes mellitus
     Route: 048
     Dates: start: 20200702, end: 20220726
  2. IBUPROFEN [Concomitant]
     Active Substance: IBUPROFEN
     Indication: Pain
     Dates: start: 20191028
  3. METFORMIN [Concomitant]
     Active Substance: METFORMIN HYDROCHLORIDE
     Indication: Type 2 diabetes mellitus
     Dates: start: 20191002

REACTIONS (5)
  - Euglycaemic diabetic ketoacidosis [Recovering/Resolving]
  - Fatigue [Recovering/Resolving]
  - Hyperventilation [Recovering/Resolving]
  - Confusional state [Recovering/Resolving]
  - Peripheral coldness [Recovering/Resolving]

NARRATIVE: CASE EVENT DATE: 20220726
